FAERS Safety Report 14493249 (Version 10)
Quarter: 2018Q4

REPORT INFORMATION
  Report Type: Spontaneous
  Country: CA (occurrence: CA)
  Receive Date: 20180206
  Receipt Date: 20181024
  Transmission Date: 20190204
  Serious: Yes (Hospitalization, Other)
  Sender: FDA-Public Use
  Company Number: CA-CELLTRION INC.-2017CA009298

PATIENT

DRUGS (10)
  1. INFLECTRA [Suspect]
     Active Substance: INFLIXIMAB-DYYB
     Dosage: 250 MG, CYCLIC EVERY 6 WEEKS
     Route: 042
     Dates: start: 20171106
  2. INFLECTRA [Suspect]
     Active Substance: INFLIXIMAB-DYYB
     Dosage: 250 MG, CYCLIC EVERY 6 WEEKS
     Route: 042
     Dates: start: 20180202
  3. INFLECTRA [Suspect]
     Active Substance: INFLIXIMAB-DYYB
     Dosage: 250 MG, CYCLIC EVERY 6 WEEKS
     Route: 042
     Dates: start: 20180427
  4. INFLECTRA [Suspect]
     Active Substance: INFLIXIMAB-DYYB
     Dosage: 250 MG, CYCLIC EVERY 6 WEEKS
     Route: 042
     Dates: start: 20180316
  5. INFLECTRA [Suspect]
     Active Substance: INFLIXIMAB-DYYB
     Dosage: 250 MG,  EVERY 6 WEEKS
     Route: 042
     Dates: start: 20180608
  6. INFLECTRA [Suspect]
     Active Substance: INFLIXIMAB-DYYB
     Dosage: 250 MG, CYCLIC EVERY 6 WEEKS
     Route: 042
     Dates: start: 20180427
  7. INFLECTRA [Suspect]
     Active Substance: INFLIXIMAB-DYYB
     Dosage: 250 MG,  EVERY 6 WEEKS
     Route: 042
     Dates: start: 20180831
  8. INFLECTRA [Suspect]
     Active Substance: INFLIXIMAB-DYYB
     Dosage: 250 MG,  EVERY 6 WEEKS
     Route: 042
     Dates: start: 20180608
  9. PREDNISONE. [Concomitant]
     Active Substance: PREDNISONE
     Dosage: 40 MG DAILY WITH TAPER OF 5 MG PER WEEK INTRAVENOUSLY AND ORALLY
  10. INFLECTRA [Suspect]
     Active Substance: INFLIXIMAB-DYYB
     Indication: CROHN^S DISEASE
     Dosage: 250 MG CYCLIC EVERY 0, 2, 6 WEEKS, THEN EVERY 8 WEEKS
     Route: 042
     Dates: start: 20170630, end: 20170925

REACTIONS (24)
  - Condition aggravated [Not Recovered/Not Resolved]
  - Anaemia [Unknown]
  - Pain [Not Recovered/Not Resolved]
  - Small intestinal obstruction [Not Recovered/Not Resolved]
  - Haemoglobin decreased [Unknown]
  - Oedema peripheral [Recovering/Resolving]
  - Platelet count increased [Unknown]
  - Abdominal pain upper [Unknown]
  - Somnolence [Unknown]
  - Product use issue [Unknown]
  - Drug effect incomplete [Unknown]
  - Therapeutic response shortened [Recovered/Resolved]
  - Weight increased [Unknown]
  - Peripheral coldness [Unknown]
  - Neutrophil count decreased [Unknown]
  - Rash [Unknown]
  - C-reactive protein increased [Unknown]
  - Mean cell volume decreased [Unknown]
  - Infusion related reaction [Recovered/Resolved]
  - Incorrect dose administered [Unknown]
  - Haematocrit decreased [Unknown]
  - Mean cell haemoglobin decreased [Unknown]
  - Mean cell haemoglobin concentration decreased [Unknown]
  - Gastrointestinal sounds abnormal [Recovering/Resolving]

NARRATIVE: CASE EVENT DATE: 2017
